FAERS Safety Report 8776338 (Version 4)
Quarter: 2012Q4

REPORT INFORMATION
  Report Type: 
  Country: US (occurrence: US)
  Receive Date: 20120910
  Receipt Date: 20121119
  Transmission Date: 20130627
  Serious: Yes (Hospitalization, Other)
  Sender: FDA-Public Use
  Company Number: US-ASTRAZENECA-2012SE60366

PATIENT
  Age: 38 Year
  Sex: Female
  Weight: 46.3 kg

DRUGS (5)
  1. SEROQUEL [Suspect]
     Route: 048
  2. TRAZADONE [Concomitant]
  3. PROZAC [Concomitant]
  4. LAMICTAL [Concomitant]
  5. MEDICATION FOR TARDIVE DYSKINESIA [Concomitant]
     Indication: TARDIVE DYSKINESIA

REACTIONS (10)
  - Withdrawal syndrome [Unknown]
  - Malaise [Unknown]
  - Insomnia [Unknown]
  - Flushing [Unknown]
  - Hot flush [Unknown]
  - Arthralgia [Unknown]
  - Myalgia [Unknown]
  - Nausea [Unknown]
  - Tardive dyskinesia [Unknown]
  - Drug dose omission [Unknown]
